FAERS Safety Report 7268123-X (Version None)
Quarter: 2011Q1

REPORT INFORMATION
  Report Type: 
  Country: None (occurrence: None)
  Receive Date: 20110201
  Receipt Date: 20110124
  Transmission Date: 20110831
  Serious: No
  Sender: FDA-Public Use
  Company Number: US-PFIZER INC-2011017594

PATIENT
  Sex: Male

DRUGS (3)
  1. CLARITHROMYCIN [Concomitant]
  2. ZYVOX [Suspect]
     Dosage: 600 MG, 2X/DAY
  3. TOBRAMYCIN [Concomitant]

REACTIONS (1)
  - DRUG LEVEL BELOW THERAPEUTIC [None]
